FAERS Safety Report 20668500 (Version 1)
Quarter: 2022Q2

REPORT INFORMATION
  Report Type: Spontaneous
  Country: US (occurrence: US)
  Receive Date: 20220404
  Receipt Date: 20220404
  Transmission Date: 20220721
  Serious: No
  Sender: FDA-Public Use
  Company Number: US-PFIZER INC-2021872890

PATIENT
  Age: 49 Year
  Sex: Male
  Weight: 90.703 kg

DRUGS (1)
  1. SUTENT [Suspect]
     Active Substance: SUNITINIB MALATE
     Indication: Malignant neoplasm of renal pelvis
     Dosage: 4 WEEKS ON,2 WEEKS OFF
     Route: 048
     Dates: start: 202106

REACTIONS (10)
  - Abdominal discomfort [Unknown]
  - Fatigue [Unknown]
  - Glossodynia [Unknown]
  - Arthralgia [Unknown]
  - Hair colour changes [Unknown]
  - Abdominal pain upper [Unknown]
  - Flatulence [Unknown]
  - Diarrhoea [Unknown]
  - Skin exfoliation [Unknown]
  - Product dose omission issue [Unknown]
